FAERS Safety Report 24307705 (Version 2)
Quarter: 2024Q4

REPORT INFORMATION
  Report Type: Spontaneous
  Country: US (occurrence: US)
  Receive Date: 20240911
  Receipt Date: 20241204
  Transmission Date: 20250115
  Serious: No
  Sender: CELLTRION
  Company Number: US-CELLTRION INC.-2024US015016

PATIENT

DRUGS (1)
  1. ZYMFENTRA [Suspect]
     Active Substance: INFLIXIMAB-DYYB
     Indication: Crohn^s disease
     Dosage: 120 MG, ONCE EVERY TWO WEEKS SUBCUTANEOUS
     Route: 058
     Dates: start: 20240607

REACTIONS (10)
  - Liquid product physical issue [Unknown]
  - Product storage error [Unknown]
  - Symptom recurrence [Not Recovered/Not Resolved]
  - Bowel movement irregularity [Not Recovered/Not Resolved]
  - Fatigue [Not Recovered/Not Resolved]
  - Abdominal pain [Not Recovered/Not Resolved]
  - Nausea [Not Recovered/Not Resolved]
  - Dizziness [Not Recovered/Not Resolved]
  - Therapeutic response shortened [Not Recovered/Not Resolved]
  - Drug ineffective [Unknown]

NARRATIVE: CASE EVENT DATE: 20240614
